FAERS Safety Report 5857951-0 (Version None)
Quarter: 2008Q3

REPORT INFORMATION
  Report Type: 
  Country: None (occurrence: None)
  Receive Date: 20080825
  Receipt Date: 20080825
  Transmission Date: 20090109
  Serious: No
  Sender: FDA-Public Use
  Company Number: None

PATIENT
  Age: 59 Year
  Sex: Female
  Weight: 114.76 kg

DRUGS (13)
  1. FLUTICASONE PROPIONATE [Suspect]
     Indication: ASTHMA
     Dosage: 2 SPRAYS EACH NOSTRAL 2 TIMES
     Route: 045
     Dates: start: 20040311, end: 20080311
  2. FLUTICASONE PROPIONATE [Suspect]
     Indication: MULTIPLE ALLERGIES
     Dosage: 2 SPRAYS EACH NOSTRAL 2 TIMES
     Route: 045
     Dates: start: 20040311, end: 20080311
  3. IPRATROPIUM BROMIDE [Concomitant]
  4. ADVAIR DISKUS 100/50 [Concomitant]
  5. OMEPROZOLE [Concomitant]
  6. EFFEXOR XR [Concomitant]
  7. ENALAPRIL MALEATE [Concomitant]
  8. ASPIRIN [Concomitant]
  9. CALCIUM 600+D [Concomitant]
  10. ETODOLAC [Concomitant]
  11. ZOLPIDEM [Concomitant]
  12. ACETAMINOPHEN AND HYDROCODONE BITARTRATE [Concomitant]
  13. FUROSEMIDE [Concomitant]

REACTIONS (11)
  - BRAIN INJURY [None]
  - CONFUSIONAL STATE [None]
  - DIPLOPIA [None]
  - DIZZINESS [None]
  - ECONOMIC PROBLEM [None]
  - EPISTAXIS [None]
  - FEELING ABNORMAL [None]
  - HEADACHE [None]
  - THINKING ABNORMAL [None]
  - TINNITUS [None]
  - VISION BLURRED [None]
